FAERS Safety Report 4689712-2 (Version None)
Quarter: 2005Q2

REPORT INFORMATION
  Report Type: 
  Country: None (occurrence: None)
  Receive Date: 20050608
  Receipt Date: 20041008
  Transmission Date: 20051028
  Serious: Yes (Other)
  Sender: FDA-Public Use
  Company Number: 382913

PATIENT
  Age: 27 Year
  Sex: Female
  Weight: 59 kg

DRUGS (1)
  1. ACCUTANE [Suspect]
     Indication: ACNE
     Dosage: 40 MG 1 PER DAY ORAL
     Route: 048
     Dates: start: 20040213, end: 20040709

REACTIONS (3)
  - MYOPIA [None]
  - NIGHT BLINDNESS [None]
  - VISION BLURRED [None]
